FAERS Safety Report 16920814 (Version 3)
Quarter: 2021Q1

REPORT INFORMATION
  Report Type: Report from Study
  Country: US (occurrence: US)
  Receive Date: 20191015
  Receipt Date: 20210311
  Transmission Date: 20210419
  Serious: Yes (Hospitalization)
  Sender: FDA-Public Use
  Company Number: US-PFIZER INC-2019444464

PATIENT
  Age: 38 Year
  Sex: Male
  Weight: 102.3 kg

DRUGS (4)
  1. GLASDEGIB [Suspect]
     Active Substance: GLASDEGIB
     Indication: ACUTE MYELOID LEUKAEMIA
     Dosage: ONCE DAILY CONTINUOUS
     Route: 048
     Dates: start: 20190709
  2. DAUNORUBICIN [Suspect]
     Active Substance: DAUNORUBICIN
     Indication: ACUTE MYELOID LEUKAEMIA
     Dosage: 141 MG, DAILY BY CONTINUOUS INFUSION
     Route: 041
     Dates: start: 20190709, end: 20190711
  3. CYTARABINE. [Suspect]
     Active Substance: CYTARABINE
     Indication: ACUTE MYELOID LEUKAEMIA
     Dosage: (CYCLE 2 CONSOLIDATION) 6990 MG, OVER 3 HOURS TWICE DAILY ON DAY 1, 3, 5
     Route: 042
     Dates: start: 20190923, end: 20190928
  4. CYTARABINE. [Suspect]
     Active Substance: CYTARABINE
     Indication: ACUTE MYELOID LEUKAEMIA
     Dosage: (INDUCTION) 235 MG, DAILY BY CONTINUOUS INFUSION
     Route: 041
     Dates: start: 20190709, end: 20190715

REACTIONS (1)
  - Febrile neutropenia [Recovered/Resolved]

NARRATIVE: CASE EVENT DATE: 20191010
